FAERS Safety Report 5658416-1 (Version None)
Quarter: 2008Q1

REPORT INFORMATION
  Report Type: 
  Country: None (occurrence: None)
  Receive Date: 20080310
  Receipt Date: 20070207
  Transmission Date: 20080703
  Serious: No
  Sender: FDA-Public Use
  Company Number: US-BAYER-200710447BCC

PATIENT
  Age: 68 Year
  Sex: Female
  Weight: 54 kg

DRUGS (7)
  1. ALEVE [Suspect]
     Indication: MUSCULOSKELETAL PAIN
     Route: 048
     Dates: start: 20070131
  2. ACTONEL [Concomitant]
  3. STORE BRAND MULTIVITAMIN [Concomitant]
  4. CALCIUM PLUS D [Concomitant]
  5. AROMASIN [Concomitant]
  6. ASCORBIC ACID [Concomitant]
  7. GLUCOSAMINE CHONDROITIN [Concomitant]

REACTIONS (2)
  - ARTHRALGIA [None]
  - MUSCULOSKELETAL PAIN [None]
